FAERS Safety Report 18015383 (Version 1)
Quarter: 2020Q3

REPORT INFORMATION
  Report Type: Spontaneous
  Country: CA (occurrence: CA)
  Receive Date: 20200713
  Receipt Date: 20200713
  Transmission Date: 20201103
  Serious: Yes (Other)
  Sender: FDA-Public Use
  Company Number: CA-GLAXOSMITHKLINE-CA2020AMR120626

PATIENT
  Age: 24 Year
  Sex: Female

DRUGS (10)
  1. ESCITALOPRAM [Suspect]
     Active Substance: ESCITALOPRAM OXALATE
     Indication: ANXIETY
     Dosage: UNK
     Route: 048
  2. GRAVOL [Concomitant]
     Active Substance: DIMENHYDRINATE
     Indication: PRODUCT USED FOR UNKNOWN INDICATION
     Dosage: 50 MG
     Route: 048
  3. ACYCLOVIR. [Suspect]
     Active Substance: ACYCLOVIR
     Indication: PREMEDICATION
     Dosage: 200 MG, BID
     Route: 048
  4. TETRAHYDROCANNABINOL [Suspect]
     Active Substance: DRONABINOL
     Indication: PRODUCT USED FOR UNKNOWN INDICATION
     Dosage: UNK
  5. METHYLPREDNISOLONE. [Concomitant]
     Active Substance: METHYLPREDNISOLONE
     Indication: PRODUCT USED FOR UNKNOWN INDICATION
     Dosage: 1 G
     Route: 042
  6. ALESSE 28 [Concomitant]
     Active Substance: ETHINYL ESTRADIOL\LEVONORGESTREL
     Indication: ORAL CONTRACEPTION
     Dosage: UNK
     Route: 048
  7. ALEMTUZUMAB [Suspect]
     Active Substance: ALEMTUZUMAB
     Indication: RELAPSING-REMITTING MULTIPLE SCLEROSIS
     Dosage: 12 MG, QD
     Route: 042
  8. CIMETIDINE [Concomitant]
     Active Substance: CIMETIDINE
     Indication: PRODUCT USED FOR UNKNOWN INDICATION
     Dosage: 200 MG
     Route: 048
  9. MELATONIN [Concomitant]
     Active Substance: MELATONIN
     Indication: PRODUCT USED FOR UNKNOWN INDICATION
     Dosage: 50 MG
  10. TYLENOL [Concomitant]
     Active Substance: ACETAMINOPHEN
     Indication: PRODUCT USED FOR UNKNOWN INDICATION
     Dosage: 975 MG
     Route: 048

REACTIONS (42)
  - Body temperature increased [Unknown]
  - Dyspnoea [Unknown]
  - Gastrooesophageal reflux disease [Unknown]
  - Nausea [Unknown]
  - Thyroid function test abnormal [Unknown]
  - Feeling abnormal [Unknown]
  - Malaise [Unknown]
  - Oropharyngeal pain [Unknown]
  - Chest pain [Unknown]
  - Dizziness [Unknown]
  - Epistaxis [Unknown]
  - Heart rate increased [Unknown]
  - Immune thrombocytopenia [Unknown]
  - Insomnia [Unknown]
  - Lymphocyte count decreased [Unknown]
  - Nasal congestion [Unknown]
  - Pain in jaw [Unknown]
  - Sensation of foreign body [Unknown]
  - Tremor [Unknown]
  - Blister [Unknown]
  - Blood creatinine increased [Unknown]
  - Constipation [Unknown]
  - Feeling hot [Unknown]
  - Panic attack [Unknown]
  - Creatinine urine decreased [Unknown]
  - Hot flush [Unknown]
  - Skin burning sensation [Unknown]
  - Anxiety [Unknown]
  - Culture urine positive [Unknown]
  - Exposure during pregnancy [Unknown]
  - Neutrophil count increased [Unknown]
  - Urticaria [Unknown]
  - Diarrhoea [Unknown]
  - Monocyte count increased [Unknown]
  - Red blood cells urine positive [Unknown]
  - Urine abnormality [Unknown]
  - Urine leukocyte esterase positive [Unknown]
  - White blood cell count increased [Unknown]
  - Band sensation [Unknown]
  - Myalgia [Unknown]
  - Thyroid cyst [Unknown]
  - Thyroid disorder [Unknown]
